FAERS Safety Report 16540552 (Version 3)
Quarter: 2019Q4

REPORT INFORMATION
  Report Type: Spontaneous
  Country: PL (occurrence: PL)
  Receive Date: 20190708
  Receipt Date: 20191007
  Transmission Date: 20200122
  Serious: Yes (Life-Threatening)
  Sender: FDA-Public Use
  Company Number: PL-ACCORD-137311

PATIENT
  Age: 68 Year
  Sex: Male

DRUGS (8)
  1. ATORVASTATIN/ATORVASTATIN CALCIUM [Suspect]
     Active Substance: ATORVASTATIN CALCIUM
     Indication: CARDIOVASCULAR EVENT PROPHYLAXIS
     Dosage: 1 X 40 MG/DAY
     Route: 065
  2. VALSARTAN. [Suspect]
     Active Substance: VALSARTAN
     Indication: CARDIOVASCULAR EVENT PROPHYLAXIS
     Dosage: 1 X 80 MG/DAY
     Route: 065
  3. THEOPHYLLINE [Suspect]
     Active Substance: THEOPHYLLINE ANHYDROUS
     Indication: CARDIOVASCULAR EVENT PROPHYLAXIS
     Dosage: 2 X 300 MG/DAY
  4. INSULIN [Suspect]
     Active Substance: INSULIN NOS
     Indication: BLOOD GLUCOSE ABNORMAL
     Dosage: UNK
     Route: 065
  5. BISOPROLOL [Suspect]
     Active Substance: BISOPROLOL
     Indication: CARDIOVASCULAR EVENT PROPHYLAXIS
     Dosage: 1 X 2.5 MG/DAY, ALSO RECEIVED 7.5 MG
  6. GLICLAZIDE [Suspect]
     Active Substance: GLICLAZIDE
     Indication: CARDIOVASCULAR EVENT PROPHYLAXIS
     Dosage: 1 X 60 MG/DAY, SR
     Route: 048
  7. ACETYLSALICYLIC ACID [Suspect]
     Active Substance: ASPIRIN
     Indication: CARDIOVASCULAR EVENT PROPHYLAXIS
     Dosage: 1 X 75 MG/DAY
     Route: 065
  8. TICAGRELOR. [Suspect]
     Active Substance: TICAGRELOR
     Indication: CARDIOVASCULAR EVENT PROPHYLAXIS
     Dosage: 2 X 90 MG/DAY
     Route: 048

REACTIONS (6)
  - Blood glucose increased [Unknown]
  - Chest pain [Unknown]
  - Intentional dose omission [Unknown]
  - Blood pressure increased [Recovered/Resolved]
  - Lipid metabolism disorder [Recovered/Resolved]
  - Treatment noncompliance [Unknown]

NARRATIVE: CASE EVENT DATE: 201801
